FAERS Safety Report 21773979 (Version 1)
Quarter: 2022Q4

REPORT INFORMATION
  Report Type: Spontaneous
  Country: US (occurrence: US)
  Receive Date: 20221223
  Receipt Date: 20221223
  Transmission Date: 20230113
  Serious: No
  Sender: FDA-Public Use
  Company Number: US-BAUSCH-BL-2022-027411

PATIENT
  Sex: Female

DRUGS (2)
  1. APLENZIN [Suspect]
     Active Substance: BUPROPION HYDROBROMIDE
     Indication: Product used for unknown indication
     Route: 048
  2. APLENZIN [Suspect]
     Active Substance: BUPROPION HYDROBROMIDE
     Route: 048

REACTIONS (1)
  - Intentional product use issue [Unknown]
